FAERS Safety Report 6106958-7 (Version None)
Quarter: 2009Q1

REPORT INFORMATION
  Report Type: 
  Country: None (occurrence: None)
  Receive Date: 20090309
  Receipt Date: 20090304
  Transmission Date: 20090719
  Serious: Yes (Other)
  Sender: FDA-Public Use
  Company Number: BR-JNJFOC-20090301385

PATIENT
  Age: 42 Year
  Sex: Male
  Weight: 70 kg

DRUGS (2)
  1. HALDOL [Suspect]
     Indication: ANXIETY
     Dosage: 1 AND HALF TABLET A DAY
     Route: 048
  2. AKINETON [Concomitant]
     Indication: STRESS
     Dosage: HALF TABLET OF 2 MG A DAY
     Route: 048

REACTIONS (3)
  - AGITATION [None]
  - BIPOLAR DISORDER [None]
  - INSOMNIA [None]
